FAERS Safety Report 14293389 (Version 2)
Quarter: 2018Q1

REPORT INFORMATION
  Report Type: Report from Study
  Country: US (occurrence: US)
  Receive Date: 20171215
  Receipt Date: 20180115
  Transmission Date: 20180509
  Serious: No
  Sender: FDA-Public Use
  Company Number: US-009507513-1711USA007457

PATIENT
  Age: 51 Year
  Sex: Female

DRUGS (11)
  1. GLIPIZIDE. [Concomitant]
     Active Substance: GLIPIZIDE
  2. ASPIRIN. [Concomitant]
     Active Substance: ASPIRIN
     Route: 048
  3. LOSARTAN POTASSIUM. [Concomitant]
     Active Substance: LOSARTAN POTASSIUM
     Route: 048
  4. XYZAL [Concomitant]
     Active Substance: LEVOCETIRIZINE DIHYDROCHLORIDE
  5. METOPROLOL. [Concomitant]
     Active Substance: METOPROLOL
  6. HYDROCHLOROTHIAZIDE (+) TRIAMTERENE [Concomitant]
     Active Substance: HYDROCHLOROTHIAZIDE\TRIAMTERENE
  7. ASMANEX [Suspect]
     Active Substance: MOMETASONE FUROATE
     Indication: ASTHMA
     Dosage: ONE PUFF ONCE DAILY
     Route: 048
     Dates: start: 201708, end: 2017
  8. ASMANEX [Suspect]
     Active Substance: MOMETASONE FUROATE
     Dosage: ONE PUFF ONCE DAILY
     Route: 048
     Dates: start: 2017, end: 20171026
  9. ATORVASTATIN [Concomitant]
     Active Substance: ATORVASTATIN
  10. PROAIR HFA [Concomitant]
     Active Substance: ALBUTEROL SULFATE
     Dosage: UNK
  11. MONTELUKAST SODIUM. [Concomitant]
     Active Substance: MONTELUKAST SODIUM
     Route: 048

REACTIONS (4)
  - Hypoaesthesia oral [Recovered/Resolved]
  - Formication [Recovered/Resolved]
  - Hypoaesthesia [Recovered/Resolved]
  - Visual impairment [Recovered/Resolved]

NARRATIVE: CASE EVENT DATE: 2017
